FAERS Safety Report 14822954 (Version 2)
Quarter: 2018Q2

REPORT INFORMATION
  Report Type: Report from Study
  Country: TW (occurrence: TW)
  Receive Date: 20180427
  Receipt Date: 20180528
  Transmission Date: 20180711
  Serious: Yes (Other)
  Sender: FDA-Public Use
  Company Number: PHHY2018TW074527

PATIENT
  Age: 91 Year
  Sex: Female

DRUGS (13)
  1. TASIGNA [Suspect]
     Active Substance: NILOTINIB
     Indication: CHRONIC MYELOID LEUKAEMIA
     Dosage: 600 OT, UNK
     Route: 048
     Dates: start: 20160302, end: 20160308
  2. TASIGNA [Suspect]
     Active Substance: NILOTINIB
     Dosage: 600 OT, UNK
     Route: 048
     Dates: start: 20160629, end: 20171211
  3. PROPRANOLOL [Concomitant]
     Active Substance: PROPRANOLOL HYDROCHLORIDE
     Indication: ARRHYTHMIA
     Dosage: 5 MG, UNK, MORE THAN 3 MONTHS BEFORE VISIT 1
     Route: 048
  4. TASIGNA [Suspect]
     Active Substance: NILOTINIB
     Dosage: UNK
  5. TASIGNA [Suspect]
     Active Substance: NILOTINIB
     Dosage: 300 OT, UNK
     Route: 048
     Dates: start: 20160309, end: 20160321
  6. TASIGNA [Suspect]
     Active Substance: NILOTINIB
     Dosage: 450 OT, UNK
     Route: 048
     Dates: start: 20160502, end: 20160628
  7. ISOSORBIDE DINITRATE. [Concomitant]
     Active Substance: ISOSORBIDE DINITRATE
     Indication: MYOCARDIAL ISCHAEMIA
     Dosage: 10 MG, UNK, MORE THAN 3 MONTHS BEFROE VISIT 1
     Route: 048
  8. ALPRAZOLAM. [Concomitant]
     Active Substance: ALPRAZOLAM
     Indication: INSOMNIA
     Dosage: 0.25 MG, UNK, MORE THAN 3 MONTHS BEFORE VISIT 1
     Route: 048
     Dates: end: 20160218
  9. LACIDIPINE [Concomitant]
     Active Substance: LACIDIPINE
     Indication: HYPERTENSION
     Dosage: 4 MG, UNK, MORE THAN 3 MON THS BEFORE VISIT 1
     Route: 048
  10. VALSARTAN. [Concomitant]
     Active Substance: VALSARTAN
     Indication: HYPERTENSION
     Dosage: 160 MG, UNK, MORE THAN 3 MONTHS BEFORE VISIT 1
     Route: 048
  11. WARFARIN [Concomitant]
     Active Substance: WARFARIN
     Indication: PROPHYLAXIS
     Dosage: 2.5 MG, UNK, MORE THAN 3 MONTHS BEFORE VISIT 1
     Route: 048
  12. TASIGNA [Suspect]
     Active Substance: NILOTINIB
     Dosage: 600 OT, UNK
     Route: 048
     Dates: start: 20160322, end: 20160501
  13. DOXAZOSIN [Concomitant]
     Active Substance: DOXAZOSIN\DOXAZOSIN MESYLATE
     Indication: HYPERTENSION
     Dosage: 4 MG, UNK, MORE THAN 3 MONTHS BEFORE VISIT 1
     Route: 048

REACTIONS (4)
  - Paresis [Unknown]
  - Motor dysfunction [Unknown]
  - Cerebral infarction [Not Recovered/Not Resolved]
  - Paralysis [Unknown]

NARRATIVE: CASE EVENT DATE: 20171102
